FAERS Safety Report 4642019-1 (Version None)
Quarter: 2005Q2

REPORT INFORMATION
  Report Type: 
  Country: None (occurrence: None)
  Receive Date: 20050318
  Receipt Date: 20050121
  Transmission Date: 20051028
  Serious: Yes (Hospitalization)
  Sender: FDA-Public Use
  Company Number: 003962

PATIENT
  Age: 35 Year
  Sex: Female
  Weight: 71 kg

DRUGS (1)
  1. SEASONALE [Suspect]

REACTIONS (1)
  - PANCREATITIS [None]
